FAERS Safety Report 15878417 (Version 1)
Quarter: 2019Q1

REPORT INFORMATION
  Report Type: Report from Study
  Country: US (occurrence: US)
  Receive Date: 20190128
  Receipt Date: 20190128
  Transmission Date: 20190417
  Serious: Yes (Other)
  Sender: FDA-Public Use
  Company Number: US-BAUSCH-BL-2018-025823

PATIENT
  Age: 62 Year
  Sex: Female

DRUGS (4)
  1. XIFAXAN [Suspect]
     Active Substance: RIFAXIMIN
     Indication: HEPATIC ENCEPHALOPATHY
     Dosage: A COUPLE YEARS AGO
     Route: 048
     Dates: end: 201807
  2. GENERLAC [Concomitant]
     Active Substance: LACTULOSE
     Indication: PRODUCT USED FOR UNKNOWN INDICATION
     Route: 048
     Dates: end: 20190119
  3. GENERLAC [Concomitant]
     Active Substance: LACTULOSE
     Route: 048
     Dates: start: 20190121
  4. XIFAXAN [Suspect]
     Active Substance: RIFAXIMIN
     Route: 048
     Dates: start: 2018

REACTIONS (9)
  - Skin laceration [Unknown]
  - Malaise [Not Recovered/Not Resolved]
  - Confusional state [Unknown]
  - Therapy cessation [Recovered/Resolved]
  - Product availability issue [Recovered/Resolved]
  - Hepatic cirrhosis [Unknown]
  - Fall [Unknown]
  - Gait disturbance [Unknown]
  - Haemorrhage [Unknown]

NARRATIVE: CASE EVENT DATE: 201807
